FAERS Safety Report 11614125 (Version 2)
Quarter: 2015Q4

REPORT INFORMATION
  Report Type: Spontaneous
  Country: US (occurrence: US)
  Receive Date: 20151008
  Receipt Date: 20151207
  Transmission Date: 20160304
  Serious: Yes (Hospitalization)
  Sender: FDA-Public Use
  Company Number: PHEH2015US019977

PATIENT
  Sex: Female

DRUGS (1)
  1. RECLAST [Suspect]
     Active Substance: ZOLEDRONIC ACID
     Indication: OSTEOPOROSIS
     Dosage: ONCE/SINGLE (YEARLY)
     Route: 042
     Dates: start: 20131029

REACTIONS (3)
  - Hypotension [Recovered/Resolved]
  - Pyrexia [Recovered/Resolved]
  - Influenza like illness [Unknown]
